FAERS Safety Report 10568464 (Version 1)
Quarter: 2014Q4

REPORT INFORMATION
  Report Type: Spontaneous
  Country: GB (occurrence: GB)
  Receive Date: 20141106
  Receipt Date: 20141106
  Transmission Date: 20150529
  Serious: Yes (Other)
  Sender: FDA-Public Use
  Company Number: GB-TEVA-519912ISR

PATIENT
  Age: 32 Year
  Sex: Female
  Weight: 86.4 kg

DRUGS (11)
  1. TRISENOX [Suspect]
     Active Substance: ARSENIC TRIOXIDE
     Route: 065
     Dates: start: 2010
  2. TRISENOX [Suspect]
     Active Substance: ARSENIC TRIOXIDE
     Indication: ACUTE PROMYELOCYTIC LEUKAEMIA
     Dosage: 4 CYCLES OF THERAPY, WEEK 1 - 0.3 MG A DAY, FOR FIVE DAYS (2 DAYS REST); WEEKS 2-4 - 0.25 MG TWICE A
     Route: 065
     Dates: start: 201309
  3. IDARUBICIN [Suspect]
     Active Substance: IDARUBICIN
     Indication: ACUTE PROMYELOCYTIC LEUKAEMIA
     Route: 065
     Dates: start: 201309
  4. BUSULFAN [Suspect]
     Active Substance: BUSULFAN
     Indication: ACUTE PROMYELOCYTIC LEUKAEMIA
     Route: 065
     Dates: start: 201212
  5. CYCLOPHOSPHAMIDE. [Suspect]
     Active Substance: CYCLOPHOSPHAMIDE
     Indication: ACUTE PROMYELOCYTIC LEUKAEMIA
     Route: 065
     Dates: start: 201212
  6. THIOTEPA. [Suspect]
     Active Substance: THIOTEPA
     Indication: ACUTE PROMYELOCYTIC LEUKAEMIA
     Route: 065
     Dates: start: 201212
  7. MITOXANTRONE [Suspect]
     Active Substance: MITOXANTRONE HYDROCHLORIDE
     Indication: ACUTE PROMYELOCYTIC LEUKAEMIA
     Route: 065
     Dates: start: 201002
  8. MYLOTARG [Suspect]
     Active Substance: GEMTUZUMAB OZOGAMICIN
     Indication: ACUTE PROMYELOCYTIC LEUKAEMIA
     Route: 065
     Dates: start: 201309
  9. TRETINOIN. [Suspect]
     Active Substance: TRETINOIN
     Route: 065
     Dates: start: 201002
  10. TRETINOIN. [Suspect]
     Active Substance: TRETINOIN
     Indication: ACUTE PROMYELOCYTIC LEUKAEMIA
     Route: 065
     Dates: start: 201309
  11. IDARUBICIN [Suspect]
     Active Substance: IDARUBICIN
     Route: 065
     Dates: start: 201002

REACTIONS (3)
  - Leukaemia recurrent [Unknown]
  - Lower respiratory tract infection fungal [Unknown]
  - Malaise [Unknown]

NARRATIVE: CASE EVENT DATE: 201309
